FAERS Safety Report 9987976 (Version 2)
Quarter: 2014Q1

REPORT INFORMATION
  Report Type: Spontaneous
  Country: GB (occurrence: GB)
  Receive Date: 20140307
  Receipt Date: 20140321
  Transmission Date: 20141002
  Serious: Yes (Life-Threatening, Hospitalization)
  Sender: FDA-Public Use
  Company Number: GB-ASTRAZENECA-2014SE15863

PATIENT
  Age: 69 Year
  Sex: Female

DRUGS (7)
  1. OMEPRAZOLE [Suspect]
     Route: 048
     Dates: end: 20140209
  2. INDAPAMIDE [Suspect]
     Indication: HYPERTENSION
     Route: 048
     Dates: end: 20140209
  3. ATENOLOL [Concomitant]
  4. ENALAPRIL [Concomitant]
  5. LACTULOSE [Concomitant]
  6. SENNA [Concomitant]
  7. STATIN [Concomitant]

REACTIONS (4)
  - Circulatory collapse [Unknown]
  - Unresponsive to stimuli [Unknown]
  - Liver function test abnormal [Unknown]
  - Hyponatraemia [Recovered/Resolved]
